FAERS Safety Report 7827081-7 (Version None)
Quarter: 2011Q4

REPORT INFORMATION
  Report Type: 
  Country: None (occurrence: None)
  Receive Date: 20111020
  Receipt Date: 20111014
  Transmission Date: 20120403
  Serious: Yes (Other)
  Sender: FDA-Public Use
  Company Number: US-JNJFOC-20111007668

PATIENT
  Sex: Female
  Weight: 66.1 kg

DRUGS (12)
  1. CELEBREX [Concomitant]
     Route: 048
     Dates: start: 20091022
  2. ASPIRIN [Concomitant]
     Route: 048
     Dates: start: 20100812
  3. GOLIMUMAB [Suspect]
     Route: 058
     Dates: start: 20060707
  4. ULTRAM [Concomitant]
     Route: 048
     Dates: start: 20000503
  5. FOLIC ACID [Concomitant]
     Route: 048
     Dates: start: 20000406
  6. LOZOL [Concomitant]
     Route: 048
     Dates: start: 20050101
  7. PRILOSEC [Concomitant]
     Route: 048
     Dates: start: 20080612
  8. GOLIMUMAB [Suspect]
     Indication: RHEUMATOID ARTHRITIS
     Route: 058
     Dates: start: 20110505
  9. LOTREL [Concomitant]
     Route: 048
     Dates: start: 20030828
  10. MECLIZINE [Concomitant]
     Route: 048
     Dates: start: 20050101
  11. TRIAMTERENE AND HYDROCHLOROTHIAZIDE [Concomitant]
     Route: 048
     Dates: start: 20050101
  12. MULTIVITAMINS WITH IRON [Concomitant]
     Route: 048
     Dates: start: 20070213

REACTIONS (1)
  - HISTOPLASMOSIS [None]
